FAERS Safety Report 8698602 (Version 2)
Quarter: 2013Q3

REPORT INFORMATION
  Report Type: Spontaneous
  Country: US (occurrence: US)
  Receive Date: 20120802
  Receipt Date: 20130722
  Transmission Date: 20140515
  Serious: No
  Sender: FDA-Public Use
  Company Number: US-PFIZER INC-2012183950

PATIENT
  Age: 78 Year
  Sex: Female
  Weight: 71.2 kg

DRUGS (5)
  1. VORICONAZOLE [Suspect]
     Indication: CANDIDA INFECTION
     Dosage: 200 MG, 1X/DAY
     Route: 048
     Dates: start: 2012
  2. DIOVAN [Concomitant]
     Dosage: 160 MG/DAY
  3. DILTIAZEM [Concomitant]
  4. LEVOTHYROXINE [Concomitant]
  5. CLARITIN [Concomitant]

REACTIONS (5)
  - Feeling abnormal [Unknown]
  - Pain [Unknown]
  - Fatigue [Unknown]
  - Dyspepsia [Unknown]
  - Nausea [Unknown]
